FAERS Safety Report 24827609 (Version 1)
Quarter: 2025Q1

REPORT INFORMATION
  Report Type: Spontaneous
  Country: US (occurrence: US)
  Receive Date: 20250109
  Receipt Date: 20250109
  Transmission Date: 20250408
  Serious: Yes (Death, Hospitalization)
  Sender: BAYER HEALTHCARE LLC
  Company Number: US-BAYER-2025A003171

PATIENT
  Age: 48 Year
  Sex: Male

DRUGS (4)
  1. ASPIRIN [Suspect]
     Active Substance: ASPIRIN
     Route: 048
  2. METOPROLOL [Suspect]
     Active Substance: METOPROLOL
  3. AMLODIPINE [Suspect]
     Active Substance: AMLODIPINE BESYLATE
  4. FOLIC ACID [Suspect]
     Active Substance: FOLIC ACID

REACTIONS (1)
  - Toxicity to various agents [Fatal]
